FAERS Safety Report 19817604 (Version 2)
Quarter: 2021Q4

REPORT INFORMATION
  Report Type: Report from Study
  Country: None (occurrence: JP)
  Receive Date: 20210911
  Receipt Date: 20211020
  Transmission Date: 20220304
  Serious: Yes (Death)
  Sender: FDA-Public Use
  Company Number: JP-ABBVIE-21K-087-4076073-00

PATIENT
  Age: 78 Year
  Sex: Female

DRUGS (1)
  1. RINVOQ [Suspect]
     Active Substance: UPADACITINIB
     Indication: Rheumatoid arthritis
     Route: 048
     Dates: start: 20210414, end: 20210520

REACTIONS (3)
  - Lung neoplasm malignant [Fatal]
  - Metastases to lymph nodes [Fatal]
  - Metastases to liver [Fatal]

NARRATIVE: CASE EVENT DATE: 20210521
